FAERS Safety Report 19213477 (Version 4)
Quarter: 2023Q2

REPORT INFORMATION
  Report Type: Spontaneous
  Country: US (occurrence: US)
  Receive Date: 20210504
  Receipt Date: 20230405
  Transmission Date: 20230722
  Serious: No
  Sender: FDA-Public Use
  Company Number: US-PFIZER INC-2021201131

PATIENT
  Age: 85 Year
  Sex: Female
  Weight: 74.84 kg

DRUGS (11)
  1. IBRANCE [Suspect]
     Active Substance: PALBOCICLIB
     Indication: Breast cancer metastatic
     Dosage: 125 MG, CYCLIC (125MG IN THE MORNING 21 DAYS ON AND OFF FOR 7)
     Route: 048
     Dates: start: 2018
  2. IBRANCE [Suspect]
     Active Substance: PALBOCICLIB
     Dosage: 125 MG, CYCLIC (21 DAYS AND THEN IS OFF 7 DAYS)
     Route: 048
     Dates: start: 202011
  3. IBRANCE [Suspect]
     Active Substance: PALBOCICLIB
     Dosage: 125 MG(21 DAYS THEN OFF FOR 7 DAYS)
     Dates: start: 2019
  4. LOSARTAN POTASSIUM [Concomitant]
     Active Substance: LOSARTAN POTASSIUM
     Indication: Blood pressure measurement
     Dosage: 50 MG, 2X/DAY
     Route: 048
  5. PROPRANOLOL [Concomitant]
     Active Substance: PROPRANOLOL HYDROCHLORIDE
     Indication: Blood pressure measurement
     Dosage: 20 MG, 2X/DAY
     Route: 048
  6. ACYCLOVIR [Concomitant]
     Active Substance: ACYCLOVIR
     Indication: Stomatitis
     Dosage: 400 MG, 1X/DAY (ONE TABLET IN THE MORNING A )
  7. EXEMESTANE [Concomitant]
     Active Substance: EXEMESTANE
     Dosage: 25 MG, 1X/DAY (ONCE A DAY   )
  8. HYDROCHLOROTHIAZIDE [Concomitant]
     Active Substance: HYDROCHLOROTHIAZIDE
     Indication: Blood pressure measurement
     Dosage: 12.5 MG, AS NEEDED (ONE IN THE MORNING IF NEEDED)
  9. VITAMIN C [Concomitant]
     Active Substance: ASCORBIC ACID
     Dosage: 1000 MG, 1X/DAY (ONCE A DAY)
  10. ZINC CHLORIDE [Concomitant]
     Active Substance: ZINC CHLORIDE
     Indication: Immune system disorder
     Dosage: 50 MG, 1X/DAY (ONCE A DAY)
  11. VITAMINS [Concomitant]
     Active Substance: VITAMINS
     Dosage: UNK, 1X/DAY (ONCE A DAY)

REACTIONS (15)
  - Pain in extremity [Not Recovered/Not Resolved]
  - Arthritis [Not Recovered/Not Resolved]
  - Musculoskeletal stiffness [Not Recovered/Not Resolved]
  - Stomatitis [Unknown]
  - Tinnitus [Unknown]
  - Feeling abnormal [Unknown]
  - Insomnia [Not Recovered/Not Resolved]
  - Arthralgia [Not Recovered/Not Resolved]
  - Condition aggravated [Unknown]
  - Hypertension [Unknown]
  - Poor quality sleep [Unknown]
  - Movement disorder [Unknown]
  - Muscle spasms [Unknown]
  - Gait disturbance [Unknown]
  - Myalgia [Unknown]

NARRATIVE: CASE EVENT DATE: 20180101
